FAERS Safety Report 20025124 (Version 1)
Quarter: 2021Q4

REPORT INFORMATION
  Report Type: Other
  Country: AR (occurrence: None)
  Receive Date: 20211102
  Receipt Date: 20211102
  Transmission Date: 20220303
  Serious: Yes (Death, Other)
  Sender: FDA-Public Use
  Company Number: AR-ROCHE-2947174

PATIENT

DRUGS (8)
  1. MYCOPHENOLATE MOFETIL [Suspect]
     Active Substance: MYCOPHENOLATE MOFETIL
     Indication: Systemic scleroderma
     Dosage: IN 7 PATIENTS
     Route: 065
  2. RITUXIMAB [Suspect]
     Active Substance: RITUXIMAB
     Indication: Systemic scleroderma
     Dosage: IN 6 PATIENTS
     Route: 065
  3. TOCILIZUMAB [Suspect]
     Active Substance: TOCILIZUMAB
     Indication: Systemic scleroderma
     Dosage: DOSE AND FREQUENCY WERE NOT REPORTED?TREATED IN 1 PATIENT
     Route: 058
  4. METHOTREXATE [Suspect]
     Active Substance: METHOTREXATE
     Indication: Systemic scleroderma
     Dosage: IN 22 PATIENTS
     Route: 065
  5. MEPREDNISONE [Suspect]
     Active Substance: MEPREDNISONE
     Indication: Systemic scleroderma
     Dosage: GREATER THAN 10 MG/DAY?IN 18 PATIENTS
     Route: 065
  6. AZATHIOPRINE [Suspect]
     Active Substance: AZATHIOPRINE
     Indication: Systemic scleroderma
     Dosage: IN 6 PATIENTS
     Route: 065
  7. CYCLOPHOSPHAMIDE [Suspect]
     Active Substance: CYCLOPHOSPHAMIDE
     Indication: Systemic scleroderma
     Dosage: IN 8 PATIENTS
     Route: 042
  8. MACITENTAN [Suspect]
     Active Substance: MACITENTAN
     Indication: Systemic scleroderma
     Route: 065

REACTIONS (15)
  - Adenocarcinoma of colon [Fatal]
  - Metastases to liver [Fatal]
  - Prostate cancer [Fatal]
  - Adenocarcinoma gastric [Fatal]
  - Breast cancer [Unknown]
  - B-cell lymphoma [Unknown]
  - Papillary thyroid cancer [Unknown]
  - Cervix carcinoma [Unknown]
  - Hodgkin^s disease [Unknown]
  - Basal cell carcinoma [Unknown]
  - Papilloma viral infection [Unknown]
  - Cervix carcinoma stage 0 [Unknown]
  - Off label use [Unknown]
  - Off label use [Unknown]
  - Off label use [Unknown]
